FAERS Safety Report 23949496 (Version 1)
Quarter: 2024Q2

REPORT INFORMATION
  Report Type: Other
  Country: US (occurrence: None)
  Receive Date: 20240607
  Receipt Date: 20240607
  Transmission Date: 20240716
  Serious: Yes (Hospitalization)
  Sender: FDA-Public Use
  Company Number: US-ROCHE-3345187

PATIENT
  Age: 82 Year
  Sex: Male

DRUGS (22)
  1. RITUXAN [Suspect]
     Active Substance: RITUXIMAB
     Indication: Connective tissue disorder
     Dosage: INFUSE 1 DOSE, REPEAT DOSE IN 2 WEEK, DO NOT REPEAT COURSE
     Route: 065
  2. RITUXAN [Suspect]
     Active Substance: RITUXIMAB
     Indication: Interstitial lung disease
  3. RITUXAN [Suspect]
     Active Substance: RITUXIMAB
     Indication: Injury
  4. RITUXAN [Suspect]
     Active Substance: RITUXIMAB
     Indication: Road traffic accident
  5. ASPIRIN [Concomitant]
     Active Substance: ASPIRIN
     Dosage: TAKE ONE TABLET BY MOUTH DAILY
  6. MIACALCIN [Concomitant]
     Active Substance: CALCITONIN SALMON
     Dosage: ONE SPRAY NASAL ROAD DAILY
  7. VITAMIN D3 [Concomitant]
     Active Substance: CHOLECALCIFEROL
     Dosage: TAKE 2 CAPSULES BY MOUTH DAILY
  8. PEPCID [Concomitant]
     Active Substance: FAMOTIDINE
     Indication: Dyspepsia
     Dosage: TAKE ONE TABLET BY MOUTH AS NEEDED HEARTBURN
  9. BREO ELLIPTA [Concomitant]
     Active Substance: FLUTICASONE FUROATE\VILANTEROL TRIFENATATE
     Dosage: INHALE ONE PUFF INTO LUNG ONCE DAILY
  10. PLAQUENIL [Concomitant]
     Active Substance: HYDROXYCHLOROQUINE SULFATE
     Dosage: TAKE 1 TAB BY MOUTH DAILY
  11. MAGNESIUM [Concomitant]
     Active Substance: MAGNESIUM
     Dosage: TAKE BY MOUTH DAILY.
  12. METROCREAM [Concomitant]
     Active Substance: METRONIDAZOLE
     Dosage: TAKE 3 TABLETS BY MOUTH IN MORNING ABD AT BEDTIME
  13. VITAMINS [Concomitant]
     Active Substance: VITAMINS
  14. MYFORTIC [Concomitant]
     Active Substance: MYCOPHENOLATE SODIUM
  15. FISH OIL\OMEGA-3 FATTY ACIDS [Concomitant]
     Active Substance: FISH OIL\OMEGA-3 FATTY ACIDS
  16. ZOFRAN [Concomitant]
     Active Substance: ONDANSETRON HYDROCHLORIDE
  17. DELTASONE [Concomitant]
     Active Substance: PREDNISONE
     Dosage: TAKE 1 TAB 5 MG TOTAL BY MOUTH DAILY
  18. CRESTOR [Concomitant]
     Active Substance: ROSUVASTATIN CALCIUM
     Dosage: TAKE 1 TABLET 20 MG TOTAL BY MOUTH
  19. ZOLOFT [Concomitant]
     Active Substance: SERTRALINE HYDROCHLORIDE
  20. OCEAN SALINE NASAL SPRAY [Concomitant]
     Active Substance: SODIUM CHLORIDE
     Dosage: 1 SPRAY BY NASAL ROUTE IN THE MORNING AND AT BADTIM
  21. BACTRIM [Concomitant]
     Active Substance: SULFAMETHOXAZOLE\TRIMETHOPRIM
     Dosage: TAKE ONE TABLET BY MOUTH DAILY
  22. MINERALS\VITAMINS [Concomitant]
     Active Substance: MINERALS\VITAMINS
     Dosage: TAKE ONE TABLET BY MOUTH DAILY

REACTIONS (3)
  - Off label use [Unknown]
  - Malaise [Not Recovered/Not Resolved]
  - COVID-19 [Not Recovered/Not Resolved]
